FAERS Safety Report 5135680-9 (Version None)
Quarter: 2006Q4

REPORT INFORMATION
  Report Type: 
  Country: None (occurrence: None)
  Receive Date: 20061024
  Receipt Date: 20061024
  Transmission Date: 20070319
  Serious: No
  Sender: FDA-Public Use
  Company Number: None

PATIENT
  Age: 79 Year
  Sex: Male
  Weight: 56.1 kg

DRUGS (11)
  1. ISOVUE-300 [Suspect]
     Indication: COMPUTERISED TOMOGRAM
     Dosage: 120 ML IV
     Route: 042
     Dates: start: 20060929
  2. ISOVUE-300 [Suspect]
     Indication: LYMPHOMA
     Dosage: 120 ML IV
     Route: 042
     Dates: start: 20060929
  3. PREDNISONE TAB [Concomitant]
  4. KEPPRA [Concomitant]
  5. PAXIL [Concomitant]
  6. PROSCAR [Concomitant]
  7. MEVACOR [Concomitant]
  8. ASPIRIN [Concomitant]
  9. AZOPTIC [Concomitant]
  10. TIMOLOL MALEATE [Concomitant]
  11. ALPHAGON [Concomitant]

REACTIONS (5)
  - BLOOD PRESSURE SYSTOLIC INCREASED [None]
  - BODY TEMPERATURE DECREASED [None]
  - SWELLING [None]
  - SWELLING FACE [None]
  - URTICARIA [None]
